FAERS Safety Report 23203326 (Version 2)
Quarter: 2023Q4

REPORT INFORMATION
  Report Type: Spontaneous
  Country: US (occurrence: US)
  Receive Date: 20231120
  Receipt Date: 20231211
  Transmission Date: 20240110
  Serious: Yes (Other)
  Sender: FDA-Public Use
  Company Number: US-AUROBINDO-AUR-APL-2023-068903

PATIENT
  Sex: Female

DRUGS (29)
  1. LINEZOLID [Suspect]
     Active Substance: LINEZOLID
     Indication: Atypical mycobacterial infection
     Dosage: UNK
     Route: 048
     Dates: start: 202201, end: 202202
  2. LINEZOLID [Suspect]
     Active Substance: LINEZOLID
     Indication: Soft tissue infection
  3. LINEZOLID [Suspect]
     Active Substance: LINEZOLID
     Indication: Mycobacterium fortuitum infection
  4. MOXIFLOXACIN [Suspect]
     Active Substance: MOXIFLOXACIN
     Indication: Atypical mycobacterial infection
     Dosage: UNK
     Route: 048
  5. MOXIFLOXACIN [Suspect]
     Active Substance: MOXIFLOXACIN
     Indication: Soft tissue infection
  6. MOXIFLOXACIN [Suspect]
     Active Substance: MOXIFLOXACIN
     Indication: Mycobacterium fortuitum infection
  7. DOXYCYCLINE [Suspect]
     Active Substance: DOXYCYCLINE
     Indication: Atypical mycobacterial infection
     Dosage: UNK
     Route: 048
  8. DOXYCYCLINE [Suspect]
     Active Substance: DOXYCYCLINE
     Indication: Soft tissue infection
  9. DOXYCYCLINE [Suspect]
     Active Substance: DOXYCYCLINE
     Indication: Mycobacterium fortuitum infection
  10. CLINDAMYCIN [Suspect]
     Active Substance: CLINDAMYCIN
     Indication: Atypical mycobacterial infection
     Dosage: UNK
     Route: 048
  11. CLINDAMYCIN [Suspect]
     Active Substance: CLINDAMYCIN
     Indication: Soft tissue infection
  12. CLINDAMYCIN [Suspect]
     Active Substance: CLINDAMYCIN
     Indication: Mycobacterium fortuitum infection
  13. LEVOFLOXACIN [Suspect]
     Active Substance: LEVOFLOXACIN
     Indication: Atypical mycobacterial infection
     Dosage: UNK
     Route: 048
  14. LEVOFLOXACIN [Suspect]
     Active Substance: LEVOFLOXACIN
     Indication: Soft tissue infection
  15. LEVOFLOXACIN [Suspect]
     Active Substance: LEVOFLOXACIN
     Indication: Mycobacterium fortuitum infection
  16. AMOXICILLIN\CLAVULANIC ACID [Suspect]
     Active Substance: AMOXICILLIN\CLAVULANIC ACID
     Indication: Atypical mycobacterial infection
     Dosage: UNK
     Route: 048
  17. AMOXICILLIN\CLAVULANIC ACID [Suspect]
     Active Substance: AMOXICILLIN\CLAVULANIC ACID
     Indication: Soft tissue infection
  18. AMOXICILLIN\CLAVULANIC ACID [Suspect]
     Active Substance: AMOXICILLIN\CLAVULANIC ACID
     Indication: Mycobacterium fortuitum infection
  19. SULFAMETHOXAZOLE\TRIMETHOPRIM [Suspect]
     Active Substance: SULFAMETHOXAZOLE\TRIMETHOPRIM
     Indication: Atypical mycobacterial infection
     Dosage: UNK
     Route: 048
  20. SULFAMETHOXAZOLE\TRIMETHOPRIM [Suspect]
     Active Substance: SULFAMETHOXAZOLE\TRIMETHOPRIM
     Indication: Soft tissue infection
  21. SULFAMETHOXAZOLE\TRIMETHOPRIM [Suspect]
     Active Substance: SULFAMETHOXAZOLE\TRIMETHOPRIM
     Indication: Mycobacterium fortuitum infection
  22. IMIPENEM [Suspect]
     Active Substance: IMIPENEM
     Indication: Atypical mycobacterial infection
     Dosage: UNK
     Route: 042
     Dates: start: 202201
  23. IMIPENEM [Suspect]
     Active Substance: IMIPENEM
     Indication: Soft tissue infection
  24. IMIPENEM [Suspect]
     Active Substance: IMIPENEM
     Indication: Mycobacterium fortuitum infection
  25. NUZYRA [Suspect]
     Active Substance: OMADACYCLINE
     Indication: Atypical mycobacterial infection
     Dosage: UNK
     Route: 048
  26. NUZYRA [Suspect]
     Active Substance: OMADACYCLINE
     Indication: Mycobacterium fortuitum infection
     Dosage: UNK RESTARTED
     Route: 048
  27. NUZYRA [Suspect]
     Active Substance: OMADACYCLINE
     Indication: Soft tissue infection
  28. VICKS NYQUIL [Suspect]
     Active Substance: ACETAMINOPHEN\DEXTROMETHORPHAN HYDROBROMIDE\DOXYLAMINE SUCCINATE
     Indication: Product used for unknown indication
     Dosage: UNK
     Route: 065
  29. CELEBREX [Concomitant]
     Active Substance: CELECOXIB
     Indication: Product used for unknown indication
     Dosage: UNK
     Route: 065

REACTIONS (11)
  - Lymphangitis [Unknown]
  - Diarrhoea [Unknown]
  - Dizziness [Unknown]
  - Dry mouth [Unknown]
  - Disease progression [Unknown]
  - Hypoaesthesia [Unknown]
  - Hepatic enzyme increased [Unknown]
  - Nausea [Unknown]
  - Poor quality sleep [Unknown]
  - Skin mass [Unknown]
  - Drug ineffective for unapproved indication [Unknown]
